FAERS Safety Report 5445992-7 (Version None)
Quarter: 2007Q3

REPORT INFORMATION
  Report Type: 
  Country: None (occurrence: None)
  Receive Date: 20070907
  Receipt Date: 20070829
  Transmission Date: 20080115
  Serious: Yes (Hospitalization, Other)
  Sender: FDA-Public Use
  Company Number: NL-JNJFOC-20070604145

PATIENT
  Sex: Female

DRUGS (1)
  1. MINOCYCLINE HCL [Suspect]
     Indication: CUTANEOUS SARCOIDOSIS
     Route: 048

REACTIONS (2)
  - LOCAL SWELLING [None]
  - PAPILLARY THYROID CANCER [None]
